FAERS Safety Report 24103704 (Version 1)
Quarter: 2024Q3

REPORT INFORMATION
  Report Type: Report from Study
  Country: EG (occurrence: EG)
  Receive Date: 20240717
  Receipt Date: 20240717
  Transmission Date: 20241017
  Serious: No
  Sender: ROCHE
  Company Number: EG-ROCHE-10000020097

PATIENT
  Age: 25 Year
  Sex: Female

DRUGS (1)
  1. OCREVUS [Suspect]
     Active Substance: OCRELIZUMAB
     Indication: Multiple sclerosis
     Dosage: 20-DEC-2023 OCRELIZUMAB STOPPED
     Route: 042
     Dates: start: 20230530

REACTIONS (2)
  - Maternal exposure before pregnancy [Unknown]
  - JC polyomavirus test positive [Unknown]
